FAERS Safety Report 7971178-8 (Version None)
Quarter: 2011Q4

REPORT INFORMATION
  Report Type: 
  Country: None (occurrence: None)
  Receive Date: 20111212
  Receipt Date: 20111207
  Transmission Date: 20120403
  Serious: Yes (Death, Other)
  Sender: FDA-Public Use
  Company Number: PHHO2007NL08224

PATIENT
  Sex: Male
  Weight: 86 kg

DRUGS (6)
  1. BUSULFAN [Suspect]
     Dosage: 25MG
     Dates: start: 20060822, end: 20060822
  2. NO TREATMENT RECEIVED [Suspect]
     Indication: ACUTE MYELOID LEUKAEMIA
  3. IDARUBICIN HCL [Suspect]
     Dosage: 88MG
     Dates: start: 20060818, end: 20060818
  4. FLUCONAZOLE [Concomitant]
  5. CYCLOPHOSPHAMIDE [Suspect]
     Dosage: 5200MG
     Dates: start: 20060827, end: 20060828
  6. METOPROLOL TARTRATE [Concomitant]

REACTIONS (4)
  - ACUTE MYOCARDIAL INFARCTION [None]
  - THROMBOCYTOPENIA [None]
  - PERICARDIAL EFFUSION [None]
  - PERICARDIAL HAEMORRHAGE [None]
